FAERS Safety Report 7474526 (Version 2)
Quarter: 2012Q4

REPORT INFORMATION
  Report Type: 
  Country: US (occurrence: US)
  Receive Date: 20100714
  Receipt Date: 20121120
  Transmission Date: 20130627
  Serious: Yes (Other)
  Sender: FDA-Public Use
  Company Number: US-PFIZER INC-2007058914

PATIENT
  Age: 52 Year
  Sex: Female
  Weight: 110 kg

DRUGS (3)
  1. CHANTIX [Suspect]
     Indication: SMOKING CESSATION THERAPY
     Dosage: 0.5 mg, daily
     Route: 048
     Dates: start: 20070601, end: 200707
  2. LOTREL [Concomitant]
     Indication: BLOOD PRESSURE
     Dosage: UNK
  3. ZYRTEC [Concomitant]
     Indication: ALLERGY
     Dosage: UNK

REACTIONS (3)
  - Weight increased [Not Recovered/Not Resolved]
  - Oedema [Not Recovered/Not Resolved]
  - Hypersensitivity [Unknown]
